FAERS Safety Report 5395241-3 (Version None)
Quarter: 2007Q3

REPORT INFORMATION
  Report Type: 
  Country: None (occurrence: None)
  Receive Date: 20070713
  Receipt Date: 20070329
  Transmission Date: 20080115
  Serious: Yes (Hospitalization)
  Sender: FDA-Public Use
  Company Number: US-JNJFOC-20061101265

PATIENT
  Age: 28 Year
  Sex: Female
  Weight: 110.2241 kg

DRUGS (3)
  1. ORTHO EVRA [Suspect]
     Indication: DRUG USE FOR UNKNOWN INDICATION
     Dosage: 1 DOSE (S), 1 IN 1 WEEK, TRANSDERMAL
     Route: 062
     Dates: end: 20060324
  2. VITAMIN B12 [Concomitant]
  3. FOLATE (FOLATE SODIUM) [Concomitant]

REACTIONS (2)
  - DEEP VEIN THROMBOSIS [None]
  - PULMONARY EMBOLISM [None]
